FAERS Safety Report 8430711-2 (Version None)
Quarter: 2012Q2

REPORT INFORMATION
  Report Type: 
  Country: None (occurrence: None)
  Receive Date: 20120612
  Receipt Date: 20120607
  Transmission Date: 20120825
  Serious: Yes (Life-Threatening, Hospitalization)
  Sender: FDA-Public Use
  Company Number: FR-ROCHE-1062958

PATIENT
  Sex: Male

DRUGS (22)
  1. HEPARIN CALCIUM [Suspect]
     Indication: PRODUCT USED FOR UNKNOWN INDICATION
     Dates: start: 20120405, end: 20120416
  2. CRESTOR [Concomitant]
  3. CELLCEPT [Suspect]
  4. CYCLOSPORINE [Suspect]
  5. LASIX [Concomitant]
  6. NEO-MERCAZOLE TAB [Concomitant]
  7. BACTRIM DS [Concomitant]
  8. INSULATARD NPH HUMAN [Concomitant]
     Dosage: 14 IU IN MORNING,14 IU AT MID DAY AND 12 IU IN EVENING
  9. CELLCEPT [Suspect]
     Indication: TRANSPLANT REJECTION
     Route: 002
     Dates: start: 20120321
  10. ESIDRIX [Concomitant]
  11. PREDNISOLONE [Suspect]
  12. HEPARIN CALCIUM [Suspect]
  13. VALGANCICLOVIR [Concomitant]
  14. ASPIRIN [Concomitant]
  15. NEXIUM [Concomitant]
  16. NEBIVOLOL HCL [Concomitant]
  17. NEO-MERCAZOLE TAB [Concomitant]
  18. AMLODIPINE BESYLATE [Concomitant]
  19. PREDNISOLONE [Suspect]
     Indication: TRANSPLANT REJECTION
     Route: 002
     Dates: start: 20120327
  20. TROSPIUM CHLORIDE [Concomitant]
  21. CYCLOSPORINE [Suspect]
     Indication: TRANSPLANT REJECTION
     Route: 002
     Dates: start: 20120321
  22. CORDARONE [Concomitant]

REACTIONS (6)
  - BLOOD CREATININE INCREASED [None]
  - OVERDOSE [None]
  - HEPARIN-INDUCED THROMBOCYTOPENIA [None]
  - MUSCLE HAEMORRHAGE [None]
  - ANAEMIA [None]
  - TRANSFUSION [None]
